FAERS Safety Report 24278638 (Version 11)
Quarter: 2025Q3

REPORT INFORMATION
  Report Type: Report from Study
  Country: US (occurrence: US)
  Receive Date: 20240903
  Receipt Date: 20250902
  Transmission Date: 20251020
  Serious: Yes (Hospitalization, Other)
  Sender: SUNOVION
  Company Number: US-SUMITOMO PHARMA SWITZERLAND GMBH-2024SPA000911

PATIENT
  Age: 70 Year
  Sex: Male

DRUGS (45)
  1. ORGOVYX [Suspect]
     Active Substance: RELUGOLIX
     Indication: Prostate cancer
     Dosage: 120 MG, QD
     Route: 048
     Dates: start: 20240321
  2. ALLEGRA [Concomitant]
     Active Substance: FEXOFENADINE HYDROCHLORIDE
  3. ATOMOXETINE [Concomitant]
     Active Substance: ATOMOXETINE
  4. ATORVASTATIN [Concomitant]
     Active Substance: ATORVASTATIN
  5. BICALUTAMIDE [Concomitant]
     Active Substance: BICALUTAMIDE
  6. BREZTRI [Concomitant]
     Active Substance: BUDESONIDE\FORMOTEROL\GLYCOPYRROLATE
  7. BUPROPION [Concomitant]
     Active Substance: BUPROPION
  8. CYCLOBENZAPRINE [Concomitant]
     Active Substance: CYCLOBENZAPRINE
  9. CHLORZOXAZONE [Concomitant]
     Active Substance: CHLORZOXAZONE
     Route: 048
  10. DICYCLOMINE [Concomitant]
     Active Substance: DICYCLOMINE HYDROCHLORIDE
     Route: 048
  11. FLONASE [Concomitant]
     Active Substance: FLUTICASONE PROPIONATE
  12. GABAPENTIN [Concomitant]
     Active Substance: GABAPENTIN
  13. GAS-X [Concomitant]
     Active Substance: DIMETHICONE
  14. HYDROCHLOROTHIAZIDE [Concomitant]
     Active Substance: HYDROCHLOROTHIAZIDE
     Route: 048
  15. LISINOPRIL [Concomitant]
     Active Substance: LISINOPRIL
  16. MECLIZINE [Concomitant]
     Active Substance: MECLIZINE HYDROCHLORIDE
  17. METHYLPREDNISOLONE [Concomitant]
     Active Substance: METHYLPREDNISOLONE
     Route: 048
  18. METOPROLOL [Concomitant]
     Active Substance: METOPROLOL
  19. MUCINEX [Concomitant]
     Active Substance: GUAIFENESIN
  20. VITAMINS [Concomitant]
     Active Substance: VITAMINS
  21. ONDANSETRON [Concomitant]
     Active Substance: ONDANSETRON
  22. PATADAY [Concomitant]
     Active Substance: OLOPATADINE HYDROCHLORIDE
     Route: 047
  23. SEROQUEL [Concomitant]
     Active Substance: QUETIAPINE FUMARATE
  24. STOOL SOFTENER (DOCUSATE) [Concomitant]
     Active Substance: DOCUSATE
     Route: 048
  25. SUCRALFATE [Concomitant]
     Active Substance: SUCRALFATE
     Route: 048
  26. TAMSULOSIN [Concomitant]
     Active Substance: TAMSULOSIN
  27. TRELEGY ELLIPTA [Concomitant]
     Active Substance: FLUTICASONE FUROATE\UMECLIDINIUM BROMIDE\VILANTEROL TRIFENATATE
  28. TYLENOL [Concomitant]
     Active Substance: ACETAMINOPHEN
     Route: 048
  29. URIBEL [Concomitant]
     Active Substance: HYOSCYAMINE SULFATE\METHENAMINE\METHYLENE BLUE\PHENYL SALICYLATE\SODIUM PHOSPHATE, MONOBASIC, MONOHY
     Route: 048
  30. TRAMADOL [Concomitant]
     Active Substance: TRAMADOL
  31. PREDNISONE [Concomitant]
     Active Substance: PREDNISONE
     Route: 048
  32. COMBIVENT [Concomitant]
     Active Substance: ALBUTEROL SULFATE\IPRATROPIUM BROMIDE
  33. CEFDINIR [Concomitant]
     Active Substance: CEFDINIR
     Route: 048
  34. PHENAZOPYRIDINE HCL [Concomitant]
     Active Substance: PHENAZOPYRIDINE HYDROCHLORIDE
     Route: 048
  35. DUTASTERIDE [Concomitant]
     Active Substance: DUTASTERIDE
     Route: 048
  36. PROAIR HFA [Concomitant]
     Active Substance: ALBUTEROL SULFATE
  37. NITROFURANTOIN MONOHYDRATE MACROCRYSTALS [Concomitant]
     Active Substance: NITROFURANTOIN\NITROFURANTOIN MONOHYDRATE
     Route: 048
  38. AZO Bladder Control [Concomitant]
  39. AIRSUPRA [Concomitant]
     Active Substance: ALBUTEROL SULFATE\BUDESONIDE
  40. TROMETHAMINE [Concomitant]
     Active Substance: TROMETHAMINE
  41. FERROUS GLUCONATE [Concomitant]
     Active Substance: FERROUS GLUCONATE
     Route: 048
  42. NICOTINE [Concomitant]
     Active Substance: NICOTINE
  43. FOSFOMYCIN [Concomitant]
     Active Substance: FOSFOMYCIN
     Route: 048
  44. CIPROFLOXACIN [Concomitant]
     Active Substance: CIPROFLOXACIN
     Route: 048
  45. PROMETHAZINE [Concomitant]
     Active Substance: PROMETHAZINE HYDROCHLORIDE
     Route: 048

REACTIONS (23)
  - Haematochezia [Unknown]
  - Blood urine present [Unknown]
  - Chest pain [Unknown]
  - Urinary incontinence [Unknown]
  - Rectal haemorrhage [Recovering/Resolving]
  - Chronic kidney disease [Unknown]
  - Burning sensation [Unknown]
  - Peripheral swelling [Unknown]
  - Dysuria [Unknown]
  - Joint swelling [Unknown]
  - Oedema peripheral [Unknown]
  - Weight decreased [Unknown]
  - Oropharyngeal pain [Unknown]
  - Dyspnoea [Unknown]
  - Full blood count decreased [Unknown]
  - Pain [Unknown]
  - Feeling abnormal [Unknown]
  - Urinary tract infection [Unknown]
  - Anaemia [Unknown]
  - Constipation [Unknown]
  - Fatigue [Unknown]
  - Product dose omission issue [Recovered/Resolved]
  - Incorrect dose administered [Recovered/Resolved]
